FAERS Safety Report 11984284 (Version 1)
Quarter: 2016Q1

REPORT INFORMATION
  Report Type: Spontaneous
  Country: GB (occurrence: GB)
  Receive Date: 20160201
  Receipt Date: 20160201
  Transmission Date: 20160526
  Serious: Yes (Other)
  Sender: FDA-Public Use
  Company Number: GB-JNJFOC-20160122843

PATIENT
  Age: 101 Year
  Sex: Female

DRUGS (14)
  1. PARAFFIN, LIQUID W/WHITE SOFT PARAFFIN [Concomitant]
     Route: 065
  2. MEBEVERINE HYDROCHLORIDE [Concomitant]
     Active Substance: MEBEVERINE HYDROCHLORIDE
     Route: 065
     Dates: start: 20160115
  3. CO-AMILOFRUSE [Concomitant]
     Active Substance: AMILORIDE\FUROSEMIDE
     Route: 065
     Dates: start: 20160115
  4. CHLORPHENAMINE [Concomitant]
     Active Substance: CHLORPHENIRAMINE MALEATE
     Route: 065
     Dates: start: 20150721
  5. FUCIBET [Concomitant]
     Route: 065
     Dates: start: 20151207, end: 20160104
  6. PARACETAMOL [Concomitant]
     Active Substance: ACETAMINOPHEN
     Route: 065
     Dates: start: 20150721
  7. FUROSEMIDE. [Concomitant]
     Active Substance: FUROSEMIDE
     Route: 065
     Dates: start: 20150914, end: 20160115
  8. LEVOTHYROXINE. [Concomitant]
     Active Substance: LEVOTHYROXINE
     Route: 065
     Dates: start: 20150721
  9. XARELTO [Suspect]
     Active Substance: RIVAROXABAN
     Indication: PRODUCT USED FOR UNKNOWN INDICATION
     Route: 048
     Dates: start: 20151207
  10. NITROFURANTOIN. [Concomitant]
     Active Substance: NITROFURANTOIN
     Route: 065
     Dates: start: 20151123, end: 20151130
  11. MEBEVERINE HYDROCHLORIDE [Concomitant]
     Active Substance: MEBEVERINE HYDROCHLORIDE
     Route: 065
     Dates: start: 20150721, end: 20160115
  12. CETOSTEARYL ALCOHOL [Concomitant]
     Active Substance: CETOSTEARYL ALCOHOL
     Route: 065
     Dates: start: 20150721, end: 20160115
  13. ASPIRIN. [Concomitant]
     Active Substance: ASPIRIN
     Route: 065
     Dates: start: 20150721, end: 20160115
  14. OMEPRAZOLE. [Concomitant]
     Active Substance: OMEPRAZOLE
     Route: 065
     Dates: start: 20150722

REACTIONS (2)
  - Dysphonia [Unknown]
  - Mouth swelling [Recovered/Resolved]

NARRATIVE: CASE EVENT DATE: 20151221
